FAERS Safety Report 25584083 (Version 1)
Quarter: 2025Q3

REPORT INFORMATION
  Report Type: Report from Study
  Country: US (occurrence: US)
  Receive Date: 20250721
  Receipt Date: 20250721
  Transmission Date: 20251021
  Serious: Yes (Hospitalization)
  Sender: ABBVIE
  Company Number: US-ABBVIE-6376138

PATIENT
  Age: 53 Year
  Sex: Female

DRUGS (1)
  1. SKYRIZI [Suspect]
     Active Substance: RISANKIZUMAB-RZAA
     Indication: Product used for unknown indication
     Route: 058
     Dates: start: 20241004

REACTIONS (9)
  - Peripheral swelling [Unknown]
  - Musculoskeletal stiffness [Not Recovered/Not Resolved]
  - Visual impairment [Not Recovered/Not Resolved]
  - Allergy to animal [Not Recovered/Not Resolved]
  - Cardiac disorder [Unknown]
  - Skin disorder [Not Recovered/Not Resolved]
  - Weight increased [Unknown]
  - Respiratory disorder [Unknown]
  - Device issue [Unknown]

NARRATIVE: CASE EVENT DATE: 20250101
